FAERS Safety Report 16935671 (Version 1)
Quarter: 2019Q4

REPORT INFORMATION
  Report Type: Spontaneous
  Country: RO (occurrence: RO)
  Receive Date: 20191018
  Receipt Date: 20191018
  Transmission Date: 20200122
  Serious: Yes (Other)
  Sender: FDA-Public Use
  Company Number: RO-PFIZER INC-2019447190

PATIENT
  Age: 47 Year
  Sex: Male
  Weight: 75 kg

DRUGS (7)
  1. PRADAXA [Concomitant]
     Active Substance: DABIGATRAN ETEXILATE MESYLATE
     Dosage: UNK
  2. EQUILIBRA [Concomitant]
     Dosage: UNK
  3. PRESTARIUM [Concomitant]
     Active Substance: PERINDOPRIL
     Dosage: UNK
  4. NOLPAZA [Concomitant]
     Active Substance: PANTOPRAZOLE SODIUM
     Dosage: UNK
  5. AUGMENTINE [Concomitant]
     Active Substance: AMOXICILLIN\CLAVULANATE POTASSIUM
     Dosage: UNK
  6. SUTENT [Suspect]
     Active Substance: SUNITINIB MALATE
     Indication: METASTATIC RENAL CELL CARCINOMA
     Dosage: 50 MG, CYCLIC
     Dates: start: 20190730
  7. CALCIVITA [Concomitant]
     Active Substance: CALCIUM\VITAMINS
     Dosage: UNK

REACTIONS (2)
  - Hypertension [Unknown]
  - Mouth haemorrhage [Unknown]

NARRATIVE: CASE EVENT DATE: 20191001
